FAERS Safety Report 21073700 (Version 3)
Quarter: 2022Q3

REPORT INFORMATION
  Report Type: Spontaneous
  Country: PT (occurrence: PT)
  Receive Date: 20220713
  Receipt Date: 20220902
  Transmission Date: 20221027
  Serious: Yes (Other)
  Sender: FDA-Public Use
  Company Number: PT-JNJFOC-20220718236

PATIENT
  Age: 39 Year
  Sex: Male

DRUGS (1)
  1. SIMPONI [Suspect]
     Active Substance: GOLIMUMAB
     Indication: Ankylosing spondylitis
     Route: 058

REACTIONS (4)
  - Behcet^s syndrome [Unknown]
  - Oligodendroglioma [Recovering/Resolving]
  - Drug ineffective [Unknown]
  - Therapeutic response decreased [Unknown]
